FAERS Safety Report 25172128 (Version 1)
Quarter: 2025Q2

REPORT INFORMATION
  Report Type: Spontaneous
  Country: CN (occurrence: CN)
  Receive Date: 20250408
  Receipt Date: 20250408
  Transmission Date: 20250717
  Serious: Yes (Life-Threatening, Other)
  Sender: EPIC PHARM
  Company Number: CN-EPICPHARMA-CN-2025EPCLIT00395

PATIENT
  Age: 59 Year
  Sex: Male

DRUGS (7)
  1. CARBOPLATIN [Suspect]
     Active Substance: CARBOPLATIN
     Indication: Lung squamous cell carcinoma stage III
     Route: 065
     Dates: start: 20200808
  2. CARBOPLATIN [Suspect]
     Active Substance: CARBOPLATIN
     Route: 065
     Dates: start: 20201124
  3. SINTILIMAB [Suspect]
     Active Substance: SINTILIMAB
     Indication: Lung squamous cell carcinoma stage III
     Route: 065
     Dates: start: 20200808
  4. SINTILIMAB [Suspect]
     Active Substance: SINTILIMAB
     Route: 065
     Dates: start: 20201124
  5. SINTILIMAB [Suspect]
     Active Substance: SINTILIMAB
     Route: 065
     Dates: start: 20201214
  6. PACLITAXEL [Suspect]
     Active Substance: PACLITAXEL
     Indication: Lung squamous cell carcinoma stage III
     Route: 065
     Dates: start: 20200808
  7. PACLITAXEL [Suspect]
     Active Substance: PACLITAXEL
     Route: 065
     Dates: start: 20201124

REACTIONS (3)
  - Bronchopleural fistula [Recovered/Resolved]
  - Therapy partial responder [Unknown]
  - Product use in unapproved indication [Unknown]

NARRATIVE: CASE EVENT DATE: 20200808
